FAERS Safety Report 7292779-9 (Version None)
Quarter: 2011Q1

REPORT INFORMATION
  Report Type: 
  Country: None (occurrence: None)
  Receive Date: 20110203
  Receipt Date: 20090621
  Transmission Date: 20110831
  Serious: No
  Sender: FDA-Public Use
  Company Number: 2009-00064

PATIENT
  Age: 40 Year
  Sex: Male

DRUGS (2)
  1. ALL ZICAM PRODUCTS [Suspect]
  2. ZICAM COLD REMEDY GEL SWABS [Suspect]

REACTIONS (1)
  - ANOSMIA [None]
